FAERS Safety Report 12371030 (Version 1)
Quarter: 2016Q2

REPORT INFORMATION
  Report Type: Spontaneous
  Country: GB (occurrence: GB)
  Receive Date: 20160516
  Receipt Date: 20160516
  Transmission Date: 20160815
  Serious: Yes (Other)
  Sender: FDA-Public Use
  Company Number: GB-SUN PHARMACEUTICAL INDUSTRIES LTD-2016RR-116544

PATIENT
  Age: 86 Year
  Sex: Male

DRUGS (2)
  1. CODEINE [Suspect]
     Active Substance: CODEINE
     Indication: BACK PAIN
     Dosage: 60 MG, UNK
     Route: 048
  2. PARACETAMOL [Concomitant]
     Active Substance: ACETAMINOPHEN
     Indication: BACK PAIN
     Dosage: 1 G, UNK
     Route: 048

REACTIONS (7)
  - Abdominal pain [Recovered/Resolved]
  - Thrombocytopenia [Unknown]
  - Pallor [Unknown]
  - Atrioventricular block first degree [Unknown]
  - Blood pressure decreased [Unknown]
  - Blood bilirubin increased [Unknown]
  - Hyperhidrosis [Unknown]
